FAERS Safety Report 14787801 (Version 2)
Quarter: 2018Q3

REPORT INFORMATION
  Report Type: Report from Study
  Country: DE (occurrence: DE)
  Receive Date: 20180422
  Receipt Date: 20180731
  Transmission Date: 20181010
  Serious: Yes (Other)
  Sender: FDA-Public Use
  Company Number: DE-ROCHE-2083388

PATIENT
  Age: 58 Year
  Sex: Female
  Weight: 57 kg

DRUGS (3)
  1. BEVACIZUMAB. [Suspect]
     Active Substance: BEVACIZUMAB
     Indication: BREAST CANCER
     Route: 065
     Dates: start: 20110913
  2. BEVACIZUMAB. [Suspect]
     Active Substance: BEVACIZUMAB
     Route: 065
     Dates: start: 20111220
  3. PACLITAXEL. [Concomitant]
     Active Substance: PACLITAXEL
     Indication: BREAST CANCER
     Dosage: AND RECEIVED SUBSEQUENT DOSES AT 20/SEP/2011, 11/OCT/2011, 25/OCT/2011, 15/NOV/2011, 29/NOV/2011, 0
     Route: 065
     Dates: start: 20110913

REACTIONS (2)
  - Osteonecrosis of jaw [Unknown]
  - Impaired healing [Unknown]

NARRATIVE: CASE EVENT DATE: 20120313
